FAERS Safety Report 4551131-7 (Version None)
Quarter: 2005Q1

REPORT INFORMATION
  Report Type: 
  Country: None (occurrence: None)
  Receive Date: 20050113
  Receipt Date: 20041230
  Transmission Date: 20050727
  Serious: Yes (Other)
  Sender: FDA-Public Use
  Company Number: FI-JNJFOC-20041207606

PATIENT
  Age: 14 Year
  Sex: Female

DRUGS (7)
  1. REMICADE [Suspect]
     Route: 042
  2. IMUREL [Concomitant]
     Route: 049
  3. KALCIPOS-D [Concomitant]
     Route: 049
  4. KALCIPOS-D [Concomitant]
     Dosage: 1 X 1
     Route: 049
  5. NAXOPREN [Concomitant]
     Indication: ANTIINFLAMMATORY THERAPY
     Dosage: 500MG-1G/DAY AS NEEDED
     Route: 049
  6. DITRIM DUPLO [Concomitant]
     Route: 049
  7. DITRIM DUPLO [Concomitant]
     Indication: INFECTION PROPHYLAXIS
     Route: 049

REACTIONS (9)
  - ARTHRALGIA [None]
  - BACK PAIN [None]
  - DIZZINESS [None]
  - HEADACHE [None]
  - INFUSION RELATED REACTION [None]
  - JOINT SWELLING [None]
  - NAUSEA [None]
  - PYREXIA [None]
  - TREMOR [None]
